FAERS Safety Report 9714807 (Version 1)
Quarter: 2013Q4

REPORT INFORMATION
  Report Type: Report from Study
  Country: US (occurrence: US)
  Receive Date: 20131126
  Receipt Date: 20131126
  Transmission Date: 20140711
  Serious: Yes (Other)
  Sender: FDA-Public Use
  Company Number: US-US-EMD SERONO, INC.-7251846

PATIENT
  Age: 49 Year
  Sex: Female

DRUGS (2)
  1. REBIF [Suspect]
     Indication: PRODUCT USED FOR UNKNOWN INDICATION
     Route: 058
     Dates: start: 20120816
  2. REBIF [Suspect]
     Route: 058

REACTIONS (4)
  - Lipoatrophy [Not Recovered/Not Resolved]
  - Nasopharyngitis [Unknown]
  - Liver function test abnormal [Recovered/Resolved]
  - Headache [Unknown]
